FAERS Safety Report 7366288-2 (Version None)
Quarter: 2011Q1

REPORT INFORMATION
  Report Type: 
  Country: None (occurrence: None)
  Receive Date: 20110322
  Receipt Date: 20110309
  Transmission Date: 20110831
  Serious: Yes (Life-Threatening, Hospitalization)
  Sender: FDA-Public Use
  Company Number: DE-CUBIST-2011S1000184

PATIENT
  Age: 66 Year
  Sex: Male
  Weight: 105 kg

DRUGS (4)
  1. CEFUROXIME [Concomitant]
     Indication: PRODUCT USED FOR UNKNOWN INDICATION
  2. DAPTOMYCIN [Suspect]
     Indication: INFECTION PROPHYLAXIS
     Route: 042
     Dates: start: 20110201, end: 20110201
  3. DAPTOMYCIN [Suspect]
     Route: 042
     Dates: start: 20110201, end: 20110201
  4. FUROSEMIDE [Suspect]

REACTIONS (4)
  - IMPAIRED HEALING [None]
  - CARDIAC ARREST [None]
  - DRUG ERUPTION [None]
  - POSTOPERATIVE THORACIC PROCEDURE COMPLICATION [None]
